FAERS Safety Report 16825202 (Version 4)
Quarter: 2025Q3

REPORT INFORMATION
  Report Type: Spontaneous
  Country: EU (occurrence: EU)
  Receive Date: 20190919
  Receipt Date: 20250714
  Transmission Date: 20251020
  Serious: Yes (Hospitalization)
  Sender: AUROBINDO
  Company Number: None

PATIENT
  Age: 79 Year
  Sex: Female

DRUGS (5)
  1. DEXAMETHASONE [Suspect]
     Active Substance: DEXAMETHASONE
     Indication: Chronic lymphocytic leukaemia
     Route: 065
  2. BENDAMUSTINE [Suspect]
     Active Substance: BENDAMUSTINE
     Indication: Chronic lymphocytic leukaemia
     Route: 065
  3. RITUXIMAB [Suspect]
     Active Substance: RITUXIMAB
     Indication: Chronic lymphocytic leukaemia
     Route: 065
  4. AMOXICILLIN [Concomitant]
     Active Substance: AMOXICILLIN
     Indication: Chronic lymphocytic leukaemia
     Route: 042
  5. CEFTRIAXONE [Concomitant]
     Active Substance: CEFTRIAXONE
     Indication: Chronic lymphocytic leukaemia
     Route: 065

REACTIONS (5)
  - Pyrexia [Recovered/Resolved]
  - Somnolence [Recovered/Resolved]
  - Confusional state [Recovered/Resolved]
  - Musculoskeletal stiffness [Recovered/Resolved]
  - Asthenia [Recovered/Resolved]
